FAERS Safety Report 5952119-1 (Version None)
Quarter: 2008Q4

REPORT INFORMATION
  Report Type: 
  Country: None (occurrence: None)
  Receive Date: 20081113
  Receipt Date: 20080508
  Transmission Date: 20090506
  Serious: No
  Sender: FDA-Public Use
  Company Number: A0726899A

PATIENT
  Age: 67 Year
  Sex: Male

DRUGS (2)
  1. COREG [Suspect]
     Dosage: 25MG TWICE PER DAY
     Route: 048
     Dates: start: 20040101
  2. UNKNOWN [Concomitant]

REACTIONS (2)
  - CARDIAC DISORDER [None]
  - HEART RATE IRREGULAR [None]
